FAERS Safety Report 14498223 (Version 2)
Quarter: 2018Q1

REPORT INFORMATION
  Report Type: Spontaneous
  Country: SK (occurrence: SK)
  Receive Date: 20180207
  Receipt Date: 20180315
  Transmission Date: 20180509
  Serious: Yes (Hospitalization, Other)
  Sender: FDA-Public Use
  Company Number: SK-B.I. PHARMACEUTICALS,INC./RIDGEFIELD-2018-BI-005752

PATIENT
  Age: 59 Year
  Sex: Male
  Weight: 65 kg

DRUGS (5)
  1. VARGATEF [Suspect]
     Active Substance: NINTEDANIB
     Indication: NON-SMALL CELL LUNG CANCER
     Route: 048
     Dates: start: 20171129, end: 20171229
  2. ZARZIO [Concomitant]
     Active Substance: FILGRASTIM
     Indication: FEBRILE NEUTROPENIA
     Route: 065
     Dates: start: 20171228, end: 20171229
  3. TAZOCIN [Concomitant]
     Active Substance: PIPERACILLIN SODIUM\TAZOBACTAM SODIUM
     Indication: FEBRILE NEUTROPENIA
     Route: 065
     Dates: start: 20171228, end: 20180109
  4. CIPHIN [Concomitant]
     Active Substance: BENZYL ALCOHOL\CIPROFLOXACIN HYDROCHLORIDE\HYDROCORTISONE
     Indication: FEBRILE NEUTROPENIA
     Route: 065
     Dates: start: 20171228, end: 20180111
  5. FLUCONAZOL [Concomitant]
     Active Substance: FLUCONAZOLE
     Indication: FEBRILE NEUTROPENIA
     Route: 065
     Dates: start: 20171228, end: 20180111

REACTIONS (2)
  - Malignant neoplasm progression [Unknown]
  - Liver function test increased [Recovered/Resolved]

NARRATIVE: CASE EVENT DATE: 201712
